FAERS Safety Report 5695875-2 (Version None)
Quarter: 2008Q2

REPORT INFORMATION
  Report Type: 
  Country: None (occurrence: None)
  Receive Date: 20080403
  Receipt Date: 20080403
  Transmission Date: 20081010
  Serious: Yes (Hospitalization)
  Sender: FDA-Public Use
  Company Number: None

PATIENT
  Age: 54 Year
  Sex: Female
  Weight: 73.4827 kg

DRUGS (2)
  1. COUMADIN [Suspect]
     Indication: CEREBROVASCULAR ACCIDENT
     Dosage: 8 MG DAILY PO  (DURATION: LONG TERM)
     Route: 048
  2. COUMADIN [Suspect]
     Indication: MYOCARDIAL INFARCTION
     Dosage: 8 MG DAILY PO  (DURATION: LONG TERM)
     Route: 048

REACTIONS (7)
  - ANAEMIA [None]
  - DYSPNOEA [None]
  - FALL [None]
  - HAEMOTHORAX [None]
  - HYPOTENSION [None]
  - INTERNATIONAL NORMALISED RATIO INCREASED [None]
  - RIB FRACTURE [None]
